FAERS Safety Report 4348804-8 (Version None)
Quarter: 2004Q2

REPORT INFORMATION
  Report Type: 
  Country: None (occurrence: None)
  Receive Date: 20040423
  Receipt Date: 20040416
  Transmission Date: 20050107
  Serious: Yes (Death)
  Sender: FDA-Public Use
  Company Number: 2004206428FR

PATIENT
  Age: 81 Year
  Sex: Male
  Weight: 85 kg

DRUGS (8)
  1. CELEBREX [Suspect]
     Dosage: 1 DF, QD, ORAL
     Route: 048
     Dates: start: 20030615, end: 20040128
  2. AUGMENTIN [Suspect]
     Dosage: 250MG, ORAL
     Route: 048
     Dates: start: 20040120, end: 20040220
  3. LASIX [Suspect]
     Dosage: 40 MG, BID, ORAL  ; 20MG/2ML, IV
     Route: 048
     Dates: start: 20030615
  4. RAMIPRIL [Suspect]
     Dosage: 5 MG, QD, ORAL
     Route: 048
     Dates: start: 20030615, end: 20040201
  5. CIPROFLOXACIN [Suspect]
     Dosage: 1.5 DF(250MG), BID, ORAL
     Route: 048
     Dates: end: 20040220
  6. NOZINAN [Concomitant]
  7. ROCEPHIN [Concomitant]
  8. SOLUPRED [Concomitant]

REACTIONS (9)
  - DEHYDRATION [None]
  - DIALYSIS [None]
  - HYPONATRAEMIA [None]
  - HYPOTENSION [None]
  - LUNG INFECTION [None]
  - RENAL FAILURE ACUTE [None]
  - RESPIRATORY FAILURE [None]
  - SOMNOLENCE [None]
  - WEIGHT DECREASED [None]
